FAERS Safety Report 14451361 (Version 1)
Quarter: 2018Q1

REPORT INFORMATION
  Report Type: Spontaneous
  Country: US (occurrence: US)
  Receive Date: 20180126
  Receipt Date: 20180126
  Transmission Date: 20180509
  Serious: Yes (Hospitalization)
  Sender: FDA-Public Use
  Company Number: None

PATIENT
  Age: 64 Year
  Sex: Male

DRUGS (8)
  1. LISINOPRIL. [Concomitant]
     Active Substance: LISINOPRIL
  2. PREDNISONE. [Suspect]
     Active Substance: PREDNISONE
     Indication: RENAL TRANSPLANT
     Route: 048
  3. METOPROLOL. [Concomitant]
     Active Substance: METOPROLOL
  4. GABAPENTIN. [Concomitant]
     Active Substance: GABAPENTIN
  5. SIMVASTATIN. [Concomitant]
     Active Substance: SIMVASTATIN
  6. TACROLIMUS. [Concomitant]
     Active Substance: TACROLIMUS
  7. MYCOPHENOLATE [Suspect]
     Active Substance: MYCOPHENOLIC ACID
     Indication: RENAL TRANSPLANT
     Route: 048
     Dates: start: 20130908
  8. FUROXETINE [Concomitant]

REACTIONS (3)
  - Sinusitis [None]
  - Central nervous system viral infection [None]
  - Drug dose omission [None]

NARRATIVE: CASE EVENT DATE: 201801
